FAERS Safety Report 9580903 (Version 1)
Quarter: 2013Q3

REPORT INFORMATION
  Report Type: Spontaneous
  Country: DE (occurrence: None)
  Receive Date: 20130916
  Receipt Date: 20130916
  Transmission Date: 20140515
  Serious: Yes (Hospitalization, Other)
  Sender: FDA-Public Use
  Company Number: JPI-P-026059

PATIENT
  Age: 56 Year
  Sex: Male

DRUGS (6)
  1. XYREM [Suspect]
     Indication: PRODUCT USED FOR UNKNOWN INDICATION
     Dosage: 90000 MG, 180 ML AT MOST, ORAL
     Dates: start: 20121018
  2. CITALOPRAM [Suspect]
     Indication: PRODUCT USED FOR UNKNOWN INDICATION
     Dosage: 10 DOSAGE FORMS, 10 TABLETS AT MOST/TOTAL AMOUNT 200 MG
     Dates: start: 20121018
  3. IBUPROFEN [Suspect]
     Indication: PRODUCT USED FOR UNKNOWN INDICATION
     Dosage: 16 DOSAGE FORMS, 16 TABLETS AT MOST/TOTAL AMOUNT 9600 MG
     Dates: start: 20121018
  4. RAMIPRIL [Suspect]
     Indication: PRODUCT USED FOR UNKNOWN INDICATION
     Dosage: 10 DOSAGE FORMS, 10 TABLETS AT MOST/TOTAL AMOUNT 50 MG
     Dates: start: 20121018
  5. MIRTAZAPINE [Suspect]
     Indication: PRODUCT USED FOR UNKNOWN INDICATION
     Dosage: 30 DOSAGE FORMS, 30 TABLETS AT MOST
     Dates: start: 20121018
  6. ALCOHOL CONTAINING FOOD AND BEVERAGES [Suspect]
     Indication: PRODUCT USED FOR UNKNOWN INDICATION
     Dates: start: 20121018

REACTIONS (4)
  - Suicide attempt [None]
  - Somnolence [None]
  - Hypotension [None]
  - Overdose [None]
